FAERS Safety Report 8097716-5 (Version None)
Quarter: 2012Q1

REPORT INFORMATION
  Report Type: 
  Country: None (occurrence: None)
  Receive Date: 20120128
  Receipt Date: 20110714
  Transmission Date: 20120608
  Serious: No
  Sender: FDA-Public Use
  Company Number: US-ABBOTT-11P-163-0839845-00

PATIENT
  Sex: Female
  Weight: 93.07 kg

DRUGS (10)
  1. HUMIRA [Suspect]
     Indication: CROHN'S DISEASE
     Dates: start: 20110501
  2. EFFEXOR [Concomitant]
     Indication: ANXIETY
  3. IMURAN [Concomitant]
     Indication: CROHN'S DISEASE
     Dates: start: 20100101
  4. LACTAID [Concomitant]
     Indication: SUPPLEMENTATION THERAPY
  5. ASACOL [Concomitant]
     Indication: CROHN'S DISEASE
  6. KLONOPIN [Concomitant]
     Indication: ANXIETY
  7. NEXIUM [Concomitant]
     Indication: CROHN'S DISEASE
  8. ZANTAC [Concomitant]
     Indication: CROHN'S DISEASE
  9. DICYCLOMINE [Concomitant]
     Indication: CROHN'S DISEASE
  10. AMITRIPTYLINE HCL [Concomitant]
     Indication: CROHN'S DISEASE

REACTIONS (4)
  - DIZZINESS [None]
  - NAUSEA [None]
  - HEPATIC ENZYME INCREASED [None]
  - FATIGUE [None]
